FAERS Safety Report 8119158-6 (Version None)
Quarter: 2012Q1

REPORT INFORMATION
  Report Type: 
  Country: None (occurrence: None)
  Receive Date: 20120207
  Receipt Date: 20120207
  Transmission Date: 20120608
  Serious: Yes (Other)
  Sender: FDA-Public Use
  Company Number: None

PATIENT
  Age: 75 Year
  Sex: Male
  Weight: 63.502 kg

DRUGS (1)
  1. VENLAFAXINE HCL [Suspect]
     Route: 048
     Dates: start: 20120201, end: 20120206

REACTIONS (3)
  - PRODUCT SUBSTITUTION ISSUE [None]
  - DEPRESSION [None]
  - DRUG INEFFECTIVE [None]
